FAERS Safety Report 9642529 (Version 1)
Quarter: 2013Q4

REPORT INFORMATION
  Report Type: Spontaneous
  Country: US (occurrence: US)
  Receive Date: 20131024
  Receipt Date: 20131024
  Transmission Date: 20140711
  Serious: Yes (Hospitalization, Other)
  Sender: FDA-Public Use
  Company Number: US-TEVA-439516USA

PATIENT
  Sex: Female

DRUGS (1)
  1. COPAXONE [Suspect]

REACTIONS (4)
  - Abasia [Recovered/Resolved]
  - Urinary tract infection [Unknown]
  - Dementia [Unknown]
  - Nuclear magnetic resonance imaging abnormal [Unknown]
